FAERS Safety Report 19175924 (Version 1)
Quarter: 2021Q2

REPORT INFORMATION
  Report Type: Spontaneous
  Country: CA (occurrence: CA)
  Receive Date: 20210424
  Receipt Date: 20210424
  Transmission Date: 20210717
  Serious: Yes (Other)
  Sender: FDA-Public Use
  Company Number: CA-ROCHE-2812626

PATIENT
  Age: 59 Year
  Sex: Female

DRUGS (9)
  1. TEMODAL [Suspect]
     Active Substance: TEMOZOLOMIDE
     Indication: GLIOBLASTOMA
  2. TEMODAL [Suspect]
     Active Substance: TEMOZOLOMIDE
     Indication: NELSON^S SYNDROME
     Route: 065
  3. BEVACIZUMAB. [Suspect]
     Active Substance: BEVACIZUMAB
     Indication: NELSON^S SYNDROME
     Route: 065
  4. TEMODAL [Suspect]
     Active Substance: TEMOZOLOMIDE
     Indication: GLIOBLASTOMA
  5. TEMODAL [Suspect]
     Active Substance: TEMOZOLOMIDE
     Indication: NELSON^S SYNDROME
     Route: 065
  6. SUNITINIB MALATE. [Suspect]
     Active Substance: SUNITINIB MALATE
     Indication: NELSON^S SYNDROME
     Route: 065
  7. TEMODAL [Suspect]
     Active Substance: TEMOZOLOMIDE
     Indication: NELSON^S SYNDROME
     Route: 048
  8. AFINITOR [Suspect]
     Active Substance: EVEROLIMUS
     Indication: NELSON^S SYNDROME
     Route: 065
  9. TEMODAL [Suspect]
     Active Substance: TEMOZOLOMIDE
     Indication: GLIOBLASTOMA

REACTIONS (3)
  - Off label use [Unknown]
  - Glioblastoma [Unknown]
  - Drug ineffective [Unknown]
